FAERS Safety Report 11636605 (Version 1)
Quarter: 2015Q4

REPORT INFORMATION
  Report Type: Spontaneous
  Country: US (occurrence: None)
  Receive Date: 20151015
  Receipt Date: 20151015
  Transmission Date: 20160304
  Serious: Yes (Life-Threatening, Hospitalization, Disabling, Other)
  Sender: FDA-Public Use
  Company Number: None

PATIENT
  Age: 24 Year
  Sex: Female
  Weight: 49.9 kg

DRUGS (1)
  1. DEPO-PROVERA [Suspect]
     Active Substance: MEDROXYPROGESTERONE ACETATE
     Indication: CONTRACEPTION
     Dosage: 3 MONTHS, INTO THE MUSCLE
     Route: 030
     Dates: start: 20150512, end: 20150804

REACTIONS (10)
  - Blood testosterone decreased [None]
  - Depression [None]
  - Suicidal ideation [None]
  - Menopause [None]
  - Vitamin D decreased [None]
  - Anger [None]
  - Mood swings [None]
  - Anxiety [None]
  - Feeling abnormal [None]
  - Educational problem [None]

NARRATIVE: CASE EVENT DATE: 20151014
